FAERS Safety Report 10203500 (Version 1)
Quarter: 2014Q2

REPORT INFORMATION
  Report Type: Spontaneous
  Country: US (occurrence: None)
  Receive Date: 20140523
  Receipt Date: 20140523
  Transmission Date: 20141212
  Serious: Yes (Life-Threatening, Hospitalization)
  Sender: FDA-Public Use
  Company Number: SYM-2014-21126

PATIENT
  Age: 58 Year
  Sex: Female

DRUGS (5)
  1. METRONIDAZOLE (0.075 PERCENT, VAGINAL GEL) (METRONIDAZOLE) [Suspect]
     Indication: VAGINAL INFECTION
     Route: 067
  2. ZOLPIDEM (ZOLPIDEM) [Concomitant]
  3. LORAZEPAM (LORAZEPAM) [Concomitant]
  4. SERTRALINE HYDROCHLORIDE) (SERTRALINE HYDROCHLORIDE) [Concomitant]
  5. QUETIAPINE (QUETIAPINE) [Concomitant]

REACTIONS (1)
  - Thrombotic thrombocytopenic purpura [None]
